FAERS Safety Report 10102179 (Version 1)
Quarter: 2014Q2

REPORT INFORMATION
  Report Type: Spontaneous
  Country: US (occurrence: US)
  Receive Date: 20140424
  Receipt Date: 20140424
  Transmission Date: 20141212
  Serious: No
  Sender: FDA-Public Use
  Company Number: US-PFIZER INC-2014111661

PATIENT
  Sex: Female
  Weight: 68.03 kg

DRUGS (3)
  1. OXYTETRACYCLINE HCL [Suspect]
     Indication: ABDOMINAL DISCOMFORT
     Dosage: UNK
     Dates: start: 1967, end: 1970
  2. OXYTETRACYCLINE HCL [Suspect]
     Indication: VOMITING
  3. OXYTETRACYCLINE HCL [Suspect]
     Indication: VOMITING

REACTIONS (5)
  - Off label use [Unknown]
  - Self esteem decreased [Unknown]
  - Depression [Unknown]
  - Tooth discolouration [Unknown]
  - Tooth discolouration [Unknown]
